FAERS Safety Report 24461585 (Version 1)
Quarter: 2024Q4

REPORT INFORMATION
  Report Type: Report from Study
  Country: ES (occurrence: ES)
  Receive Date: 20241018
  Receipt Date: 20241018
  Transmission Date: 20250115
  Serious: No
  Sender: ROCHE
  Company Number: ES-ROCHE-3576498

PATIENT
  Age: 24 Year
  Sex: Male

DRUGS (1)
  1. RITUXIMAB [Suspect]
     Active Substance: RITUXIMAB
     Indication: Autoimmune disorder
     Dosage: PERIODIC DOSE
     Route: 042

REACTIONS (1)
  - Influenza like illness [Unknown]
